FAERS Safety Report 14784613 (Version 1)
Quarter: 2018Q2

REPORT INFORMATION
  Report Type: Spontaneous
  Country: DE (occurrence: DE)
  Receive Date: 20180420
  Receipt Date: 20180420
  Transmission Date: 20180711
  Serious: Yes (Death, Hospitalization)
  Sender: FDA-Public Use
  Company Number: DE-BAYER-2018-071386

PATIENT
  Age: 85 Year
  Sex: Male

DRUGS (9)
  1. SIMVASTATIN. [Concomitant]
     Active Substance: SIMVASTATIN
     Dosage: 40 MG, QD
  2. TILIDIN N [NALOXONE HYDROCHLORIDE,TILIDINE HYDROCHLORIDE] [Concomitant]
     Dosage: 100/8 MG, BID
  3. LEVODOPA BENSERAZIDE HYDROCHLO [Concomitant]
     Dosage: 1 DF (50/12.5 MG), TID
  4. MIRTAZAPIN [Concomitant]
     Active Substance: MIRTAZAPINE
     Dosage: 15 MG, QD
  5. ACETYLSALICYLIC ACID({=100 MG) [Suspect]
     Active Substance: ASPIRIN
     Dosage: 100 MG, QD
  6. HYDROCHLOROTHIAZIDE W/RAMIPRIL [Concomitant]
     Active Substance: HYDROCHLOROTHIAZIDE\RAMIPRIL
     Dosage: 5/12.5 MG, BID
  7. METAMIZOL [Concomitant]
     Active Substance: METAMIZOLE SODIUM
     Dosage: 30 MG, BID
  8. LACTULOSE. [Concomitant]
     Active Substance: LACTULOSE
     Dosage: 10 ML, OM
  9. METOPROLOL. [Concomitant]
     Active Substance: METOPROLOL
     Dosage: 23.75 MG, OM

REACTIONS (6)
  - Haematemesis [Unknown]
  - Acute respiratory failure [Unknown]
  - Condition aggravated [Unknown]
  - Faecal vomiting [Unknown]
  - Cachexia [Unknown]
  - Depressed level of consciousness [Unknown]
